FAERS Safety Report 8918182 (Version 2)
Quarter: 2013Q3

REPORT INFORMATION
  Report Type: Spontaneous
  Country: US (occurrence: US)
  Receive Date: 20121120
  Receipt Date: 20130716
  Transmission Date: 20140515
  Serious: No
  Sender: FDA-Public Use
  Company Number: US-ASTRAZENECA-2012SE22506

PATIENT
  Age: 64 Year
  Sex: Male
  Weight: 46.7 kg

DRUGS (9)
  1. NEXIUM [Suspect]
     Indication: GASTROOESOPHAGEAL REFLUX DISEASE
     Route: 048
  2. NEXIUM [Suspect]
     Indication: GASTROOESOPHAGEAL REFLUX DISEASE
     Route: 048
  3. METFORMIN [Concomitant]
     Indication: DIABETES MELLITUS
  4. NOVOLIN INSULIN [Concomitant]
     Indication: DIABETES MELLITUS
  5. NOVOLIN-R INSULIN [Concomitant]
     Indication: DIABETES MELLITUS
  6. LOPRESSOR [Concomitant]
     Indication: BLOOD PRESSURE ABNORMAL
  7. LOTENSIN [Concomitant]
     Indication: BLOOD PRESSURE ABNORMAL
  8. PRAVASTATIN [Concomitant]
     Indication: BLOOD CHOLESTEROL ABNORMAL
  9. ZENPEP [Concomitant]
     Indication: PANCREATITIS

REACTIONS (8)
  - Hypertension [Unknown]
  - Pain [Unknown]
  - Weight decreased [Unknown]
  - Aphagia [Unknown]
  - Insomnia [Unknown]
  - Abdominal pain upper [Unknown]
  - Drug dose omission [Unknown]
  - Intentional drug misuse [Unknown]
